FAERS Safety Report 14947697 (Version 1)
Quarter: 2018Q2

REPORT INFORMATION
  Report Type: Spontaneous
  Country: US (occurrence: US)
  Receive Date: 20180508
  Receipt Date: 20180508
  Transmission Date: 20180711
  Serious: No
  Sender: FDA-Public Use
  Company Number: None

PATIENT
  Age: 57 Year
  Sex: Female

DRUGS (13)
  1. AMLODIPINE [Concomitant]
     Active Substance: AMLODIPINE BESYLATE
  2. OMEPRAZOLE. [Concomitant]
     Active Substance: OMEPRAZOLE
  3. LEVOTHYROXINE. [Concomitant]
     Active Substance: LEVOTHYROXINE
  4. VITAMIN D3 [Concomitant]
     Active Substance: CHOLECALCIFEROL
  5. MVI [Concomitant]
     Active Substance: VITAMINS
  6. L-CARNITINE [Concomitant]
     Active Substance: LEVOCARNITINE
  7. DIAZEPAM. [Concomitant]
     Active Substance: DIAZEPAM
  8. CALCIUM [Concomitant]
     Active Substance: CALCIUM
  9. COQ 10 [Concomitant]
     Active Substance: UBIDECARENONE
  10. GABAPENTIN. [Concomitant]
     Active Substance: GABAPENTIN
  11. LAMOTRIGINE. [Concomitant]
     Active Substance: LAMOTRIGINE
  12. CAPECITABINE TAB 500MG [Suspect]
     Active Substance: CAPECITABINE
     Indication: BREAST CANCER
     Route: 048
     Dates: start: 20171128
  13. FISH OIL [Concomitant]
     Active Substance: FISH OIL

REACTIONS (1)
  - Contusion [None]

NARRATIVE: CASE EVENT DATE: 20180424
